FAERS Safety Report 11504494 (Version 1)
Quarter: 2015Q3

REPORT INFORMATION
  Report Type: Spontaneous
  Country: US (occurrence: US)
  Receive Date: 20150915
  Receipt Date: 20150915
  Transmission Date: 20151125
  Serious: No
  Sender: FDA-Public Use
  Company Number: US-ROCHE-757116

PATIENT
  Age: 42 Year
  Sex: Male
  Weight: 77.1 kg

DRUGS (7)
  1. COPEGUS [Suspect]
     Active Substance: RIBAVIRIN
     Indication: HEPATITIS C
     Route: 048
  2. ROXICODONE [Concomitant]
     Active Substance: OXYCODONE HYDROCHLORIDE
  3. OXYCONTIN [Concomitant]
     Active Substance: OXYCODONE HYDROCHLORIDE
  4. TOPIRAMATE. [Concomitant]
     Active Substance: TOPIRAMATE
  5. PEGASYS [Suspect]
     Active Substance: PEGINTERFERON ALFA-2A
     Indication: HEPATITIS C
     Route: 058
  6. XANAX [Concomitant]
     Active Substance: ALPRAZOLAM
  7. ZOLOFT [Concomitant]
     Active Substance: SERTRALINE HYDROCHLORIDE

REACTIONS (4)
  - Rash [Not Recovered/Not Resolved]
  - Abdominal discomfort [Unknown]
  - Product quality issue [Unknown]
  - Skin infection [Not Recovered/Not Resolved]

NARRATIVE: CASE EVENT DATE: 201001
